FAERS Safety Report 20465761 (Version 2)
Quarter: 2022Q1

REPORT INFORMATION
  Report Type: Report from Study
  Country: US (occurrence: US)
  Receive Date: 20220212
  Receipt Date: 20220221
  Transmission Date: 20220424
  Serious: Yes (Life-Threatening, Hospitalization, Other)
  Sender: FDA-Public Use
  Company Number: US-JNJFOC-20220211148

PATIENT
  Age: 8 Decade
  Sex: Female
  Weight: 94.6 kg

DRUGS (3)
  1. DARATUMUMAB [Suspect]
     Active Substance: DARATUMUMAB
     Indication: Plasma cell myeloma
     Dosage: LAST DOSE WAS ON 19-JAN-2022
     Route: 058
     Dates: start: 20210921
  2. LENALIDOMIDE [Suspect]
     Active Substance: LENALIDOMIDE
     Indication: Plasma cell myeloma
     Dosage: LAST DOSE WAS ON 24-JAN-2022
     Route: 048
     Dates: start: 20210921
  3. DEXAMETHASONE [Suspect]
     Active Substance: DEXAMETHASONE
     Indication: Plasma cell myeloma
     Dosage: LAST DOSE WAS ON 19-JAN-2022?PATIENT MISTAKENLY TOOK 40 MG INSTEAD OF 20 MG ON C5D1
     Route: 048
     Dates: start: 20210921

REACTIONS (3)
  - Ejection fraction decreased [Unknown]
  - COVID-19 [Not Recovered/Not Resolved]
  - Atrial fibrillation [Recovered/Resolved]

NARRATIVE: CASE EVENT DATE: 20220122
